FAERS Safety Report 4402192-7 (Version None)
Quarter: 2004Q3

REPORT INFORMATION
  Report Type: 
  Country: None (occurrence: None)
  Receive Date: 20040720
  Receipt Date: 20040618
  Transmission Date: 20050211
  Serious: Yes (Other)
  Sender: FDA-Public Use
  Company Number: JP-MERCK-0406USA01945

PATIENT
  Age: 37 Year
  Sex: Male

DRUGS (6)
  1. VOLTAREN [Concomitant]
     Route: 048
     Dates: start: 20040419
  2. EURODIN [Concomitant]
     Route: 048
     Dates: start: 20040428
  3. PEPCID RPD [Suspect]
     Indication: GASTRITIS
     Route: 048
     Dates: start: 20040425, end: 20040615
  4. HERBS (UNSPECIFIED) [Concomitant]
     Route: 048
     Dates: start: 20040426, end: 20040615
  5. PRONASE [Concomitant]
     Route: 048
     Dates: start: 20040419
  6. MUCOSTA [Concomitant]
     Route: 048
     Dates: start: 20040419

REACTIONS (2)
  - EOSINOPHIL COUNT INCREASED [None]
  - RHABDOMYOLYSIS [None]
